FAERS Safety Report 12051478 (Version 1)
Quarter: 2016Q1

REPORT INFORMATION
  Report Type: Report from Study
  Country: US (occurrence: US)
  Receive Date: 20160209
  Receipt Date: 20160209
  Transmission Date: 20160526
  Serious: Yes (Other)
  Sender: FDA-Public Use
  Company Number: US-ABBVIE-15P-163-1435755-00

PATIENT
  Age: 49 Year
  Sex: Female

DRUGS (2)
  1. METHOTREXATE [Suspect]
     Active Substance: METHOTREXATE
     Indication: PRODUCT USED FOR UNKNOWN INDICATION
     Route: 065
  2. HUMIRA [Suspect]
     Active Substance: ADALIMUMAB
     Indication: PSORIATIC ARTHROPATHY
     Route: 065
     Dates: start: 2009, end: 20150701

REACTIONS (9)
  - Drug ineffective [Not Recovered/Not Resolved]
  - Arthralgia [Unknown]
  - Pain in extremity [Unknown]
  - Laboratory test abnormal [Unknown]
  - Myalgia [Not Recovered/Not Resolved]
  - Antinuclear antibody positive [Unknown]
  - Fatigue [Not Recovered/Not Resolved]
  - Alopecia [Unknown]
  - Lupus-like syndrome [Unknown]

NARRATIVE: CASE EVENT DATE: 201507
